FAERS Safety Report 13854750 (Version 3)
Quarter: 2017Q4

REPORT INFORMATION
  Report Type: Spontaneous
  Country: DE (occurrence: DE)
  Receive Date: 20170810
  Receipt Date: 20171025
  Transmission Date: 20180320
  Serious: Yes (Other)
  Sender: FDA-Public Use
  Company Number: DE-NOVOPROD-554529

PATIENT
  Age: 56 Year
  Sex: Female
  Weight: 73 kg

DRUGS (4)
  1. NOVORAPID [Suspect]
     Active Substance: INSULIN ASPART
     Dosage: 24 UNITS THROUGH PUMP
     Route: 058
     Dates: start: 20170715
  2. NOVORAPID [Suspect]
     Active Substance: INSULIN ASPART
     Indication: TYPE 1 DIABETES MELLITUS
     Dosage: UNK
     Route: 058
     Dates: start: 201610
  3. NOVORAPID [Suspect]
     Active Substance: INSULIN ASPART
     Dosage: UNK
     Route: 058
     Dates: start: 201707
  4. NOVORAPID [Suspect]
     Active Substance: INSULIN ASPART
     Dosage: 24 UNITS THROUGH PUMP
     Route: 058
     Dates: start: 20170714

REACTIONS (4)
  - Product leakage [Unknown]
  - Diabetic ketoacidosis [Unknown]
  - Wrong technique in product usage process [Unknown]
  - Diabetic ketoacidosis [Recovered/Resolved]

NARRATIVE: CASE EVENT DATE: 20170714
